FAERS Safety Report 16813946 (Version 4)
Quarter: 2020Q2

REPORT INFORMATION
  Report Type: Spontaneous
  Country: US (occurrence: US)
  Receive Date: 20190917
  Receipt Date: 20200601
  Transmission Date: 20200713
  Serious: Yes (Other)
  Sender: FDA-Public Use
  Company Number: US-GILEAD-2019-0428026

PATIENT
  Sex: Male
  Weight: 96.15 kg

DRUGS (71)
  1. TRUVADA [Suspect]
     Active Substance: EMTRICITABINE\TENOFOVIR DISOPROXIL FUMARATE
     Dosage: UNK
     Route: 065
     Dates: start: 2012, end: 2016
  2. METFORMIN HYDROCHLORIDE. [Concomitant]
     Active Substance: METFORMIN HYDROCHLORIDE
  3. SULFAMETHOXAZOLE AND TRIMETHOPRIM [Concomitant]
     Active Substance: SULFAMETHOXAZOLE\TRIMETHOPRIM
  4. AMMONIUM LACTATE. [Concomitant]
     Active Substance: AMMONIUM LACTATE
  5. PROCHLORPERAZINE. [Concomitant]
     Active Substance: PROCHLORPERAZINE
  6. TOUJEO [Concomitant]
     Active Substance: INSULIN GLARGINE
  7. IPRATROPIUM [Concomitant]
     Active Substance: IPRATROPIUM
  8. TRUVADA [Suspect]
     Active Substance: EMTRICITABINE\TENOFOVIR DISOPROXIL FUMARATE
     Indication: HIV INFECTION
     Dosage: UNK
     Route: 048
     Dates: start: 20100907, end: 20160715
  9. LYRICA [Concomitant]
     Active Substance: PREGABALIN
  10. VITAMIN D2 [Concomitant]
     Active Substance: ERGOCALCIFEROL
  11. GLIPIZIDE. [Concomitant]
     Active Substance: GLIPIZIDE
  12. AMITRIPTYLINE [Concomitant]
     Active Substance: AMITRIPTYLINE
  13. DOXYCYCLINE HYCLATE. [Concomitant]
     Active Substance: DOXYCYCLINE HYCLATE
  14. ZETIA [Concomitant]
     Active Substance: EZETIMIBE
  15. PURELAX [Concomitant]
     Active Substance: POLYETHYLENE GLYCOL 3350
  16. DESCOVY [Concomitant]
     Active Substance: EMTRICITABINE\TENOFOVIR ALAFENAMIDE FUMARATE
  17. BYDUREON [Concomitant]
     Active Substance: EXENATIDE
  18. NYSTATIN. [Concomitant]
     Active Substance: NYSTATIN
  19. QUETIAPINE FUMARATE. [Concomitant]
     Active Substance: QUETIAPINE FUMARATE
  20. TAMSULOSIN [Concomitant]
     Active Substance: TAMSULOSIN
  21. CETIRIZINE [Concomitant]
     Active Substance: CETIRIZINE HYDROCHLORIDE
  22. PROBENECID. [Concomitant]
     Active Substance: PROBENECID
  23. LIDOCAINE HCL [Concomitant]
     Active Substance: LIDOCAINE HYDROCHLORIDE
  24. MOXIFLOXACIN. [Concomitant]
     Active Substance: MOXIFLOXACIN
  25. BISACODYL. [Concomitant]
     Active Substance: BISACODYL
  26. ONDANSETRON [Concomitant]
     Active Substance: ONDANSETRON
  27. ADVAIR HFA [Concomitant]
     Active Substance: FLUTICASONE PROPIONATE\SALMETEROL XINAFOATE
  28. FEBUXOSTAT. [Concomitant]
     Active Substance: FEBUXOSTAT
  29. LEVOFLOXACIN. [Concomitant]
     Active Substance: LEVOFLOXACIN
  30. ROSUVASTATIN CALCIUM. [Concomitant]
     Active Substance: ROSUVASTATIN CALCIUM
  31. INDOMETHACIN [INDOMETACIN] [Concomitant]
     Active Substance: INDOMETHACIN
  32. PRAVASTATIN SODIUM. [Concomitant]
     Active Substance: PRAVASTATIN SODIUM
  33. X-VIATE [Concomitant]
     Active Substance: UREA
  34. COLLAGENASE SANTYL [Concomitant]
     Active Substance: COLLAGENASE CLOSTRIDIUM HISTOLYTICUM
  35. SEROQUEL [Concomitant]
     Active Substance: QUETIAPINE FUMARATE
  36. OXYCODONE AND ACETAMINOPHEN [Concomitant]
     Active Substance: ACETAMINOPHEN\OXYCODONE HYDROCHLORIDE
  37. PREDNISONE. [Concomitant]
     Active Substance: PREDNISONE
  38. CIALIS [Concomitant]
     Active Substance: TADALAFIL
  39. VASCEPA [Concomitant]
     Active Substance: ICOSAPENT ETHYL
  40. AZITHROMYCIN ANHYDROUS. [Concomitant]
     Active Substance: AZITHROMYCIN ANHYDROUS
  41. CONDYLOX [Concomitant]
     Active Substance: PODOFILOX
  42. ALLOPURINOL. [Concomitant]
     Active Substance: ALLOPURINOL
  43. OXYCODONE [Concomitant]
     Active Substance: OXYCODONE
  44. LOTEMAX [Concomitant]
     Active Substance: LOTEPREDNOL ETABONATE
  45. CICLOPIROX. [Concomitant]
     Active Substance: CICLOPIROX
  46. ZOLPIDEM TARTRATE. [Concomitant]
     Active Substance: ZOLPIDEM TARTRATE
  47. TRESIBA [Concomitant]
     Active Substance: INSULIN DEGLUDEC
  48. ULORIC [Concomitant]
     Active Substance: FEBUXOSTAT
  49. TRAVATAN [Concomitant]
     Active Substance: TRAVOPROST
  50. LISINOPRIL. [Concomitant]
     Active Substance: LISINOPRIL
  51. TRADJENTA [Concomitant]
     Active Substance: LINAGLIPTIN
  52. SERTRALINE [Concomitant]
     Active Substance: SERTRALINE HYDROCHLORIDE
  53. PROAIR HFA [Concomitant]
     Active Substance: ALBUTEROL SULFATE
  54. NEOMYCIN. [Concomitant]
     Active Substance: NEOMYCIN
  55. KALETRA [Concomitant]
     Active Substance: LOPINAVIR\RITONAVIR
  56. SILVADENE [Concomitant]
     Active Substance: SILVER SULFADIAZINE
  57. ISENTRESS [Concomitant]
     Active Substance: RALTEGRAVIR POTASSIUM
  58. ALPHAGAN P [Concomitant]
     Active Substance: BRIMONIDINE TARTRATE
  59. AVELOX [Concomitant]
     Active Substance: MOXIFLOXACIN HYDROCHLORIDE
  60. BUPROPION HYDROCHLORIDE XL [Concomitant]
     Active Substance: BUPROPION HYDROCHLORIDE
  61. SILDENAFIL. [Concomitant]
     Active Substance: SILDENAFIL
  62. PERCOCET [OXYCODONE HYDROCHLORIDE;OXYCODONE TEREPHTHALATE;PARACETAMOL] [Concomitant]
     Active Substance: ACETAMINOPHEN\OXYCODONE HYDROCHLORIDE\OXYCODONE TEREPHTHALATE
  63. ALDARA [Concomitant]
     Active Substance: IMIQUIMOD
  64. GABITRIL [Concomitant]
     Active Substance: TIAGABINE HYDROCHLORIDE
  65. FENOFIBRATE. [Concomitant]
     Active Substance: FENOFIBRATE
  66. VENTOLIN [Concomitant]
     Active Substance: ALBUTEROL SULFATE
  67. HYDROXYZINE [Concomitant]
     Active Substance: HYDROXYZINE HYDROCHLORIDE
  68. MUPIROCIN. [Concomitant]
     Active Substance: MUPIROCIN
  69. AMOXICILLIN TRIHYDRATE;CLAVULANATE POTASSIUM [Concomitant]
     Active Substance: AMOXICILLIN\CLAVULANATE POTASSIUM
  70. TRAZODONE [Concomitant]
     Active Substance: TRAZODONE HYDROCHLORIDE
  71. TESTOSTERONE CYPIONATE. [Concomitant]
     Active Substance: TESTOSTERONE CYPIONATE

REACTIONS (15)
  - Tooth loss [Unknown]
  - Anxiety [Unknown]
  - Pain [Unknown]
  - Gait disturbance [Not Recovered/Not Resolved]
  - Bone loss [Unknown]
  - Osteonecrosis [Unknown]
  - Bone density abnormal [Unknown]
  - Osteoporosis [Not Recovered/Not Resolved]
  - Bone density decreased [Not Recovered/Not Resolved]
  - Anhedonia [Unknown]
  - Emotional distress [Unknown]
  - Loss of personal independence in daily activities [Not Recovered/Not Resolved]
  - Muscle atrophy [Not Recovered/Not Resolved]
  - Economic problem [Unknown]
  - Chondropathy [Not Recovered/Not Resolved]
